FAERS Safety Report 9851125 (Version 1)
Quarter: 2014Q1

REPORT INFORMATION
  Report Type: Spontaneous
  Country: FR (occurrence: FR)
  Receive Date: 20140128
  Receipt Date: 20140128
  Transmission Date: 20141002
  Serious: Yes (Death, Life-Threatening, Hospitalization)
  Sender: FDA-Public Use
  Company Number: FR-LUNDBECK-DKLU1096928

PATIENT
  Age: 3 Year
  Sex: Male

DRUGS (8)
  1. ONFI [Suspect]
     Indication: SEVERE MYOCLONIC EPILEPSY OF INFANCY
     Route: 048
     Dates: start: 2011, end: 20131220
  2. MICROPAKINE [Suspect]
     Indication: SEVERE MYOCLONIC EPILEPSY OF INFANCY
     Route: 048
     Dates: start: 2011, end: 20131220
  3. PARACETAMOL [Suspect]
     Indication: PYREXIA
     Route: 048
     Dates: start: 20131220, end: 20131220
  4. DIACOMIT [Suspect]
     Indication: SEVERE MYOCLONIC EPILEPSY OF INFANCY
     Route: 048
     Dates: start: 2011, end: 20131220
  5. EPITOMAX [Suspect]
     Indication: SEVERE MYOCLONIC EPILEPSY OF INFANCY
     Route: 048
     Dates: start: 2011, end: 20131220
  6. GLUCOSE [Concomitant]
     Indication: PRODUCT USED FOR UNKNOWN INDICATION
  7. THIOPENTAL [Concomitant]
     Indication: PRODUCT USED FOR UNKNOWN INDICATION
  8. HYPNOVEL [Concomitant]
     Indication: PRODUCT USED FOR UNKNOWN INDICATION

REACTIONS (5)
  - Death [Fatal]
  - Lipase increased [Fatal]
  - Vessel puncture site haemorrhage [Fatal]
  - Gastrointestinal haemorrhage [Fatal]
  - Hepatitis fulminant [Fatal]
